FAERS Safety Report 9564221 (Version 3)
Quarter: 2013Q4

REPORT INFORMATION
  Report Type: Report from Study
  Country: MX (occurrence: MX)
  Receive Date: 20130930
  Receipt Date: 20131112
  Transmission Date: 20140711
  Serious: Yes (Life-Threatening, Hospitalization, Disabling, Other)
  Sender: FDA-Public Use
  Company Number: MX-ROCHE-1075957

PATIENT
  Age: 53 Year
  Sex: Male

DRUGS (3)
  1. MYCOPHENOLATE MOFETIL [Suspect]
     Indication: RENAL TRANSPLANT
     Route: 065
     Dates: start: 20070524
  2. BELATACEPT [Suspect]
     Indication: RENAL TRANSPLANT
     Route: 042
     Dates: start: 20070524
  3. PREDNISONE [Suspect]
     Indication: RENAL TRANSPLANT
     Route: 065
     Dates: start: 20070524

REACTIONS (2)
  - Haematoma [Recovered/Resolved with Sequelae]
  - Squamous cell carcinoma [Not Recovered/Not Resolved]
